FAERS Safety Report 4932679-X (Version None)
Quarter: 2006Q1

REPORT INFORMATION
  Report Type: 
  Country: None (occurrence: None)
  Receive Date: 20060301
  Receipt Date: 20060216
  Transmission Date: 20060701
  Serious: Yes (Hospitalization)
  Sender: FDA-Public Use
  Company Number: 2006025356

PATIENT
  Sex: Female

DRUGS (2)
  1. DEPO-PROVERA [Suspect]
     Indication: CONTRACEPTION
     Dosage: 150 MG (150 MG, 1ST INJECTION, AFTER DISCONTINUATION)  INTRAMUSCULAR
     Dates: start: 20040101, end: 20040101
  2. DEPO-PROVERA [Suspect]
     Indication: CONTRACEPTION
     Dosage: 150 MG (150 MG, 1ST INJECTION, AFTER DISCONTINUATION)  INTRAMUSCULAR
     Dates: start: 20051116, end: 20051116

REACTIONS (4)
  - ABDOMINAL PAIN [None]
  - ABORTION [None]
  - AMENORRHOEA [None]
  - MATERNAL DRUGS AFFECTING FOETUS [None]
